FAERS Safety Report 8334553-8 (Version None)
Quarter: 2012Q2

REPORT INFORMATION
  Report Type: 
  Country: None (occurrence: None)
  Receive Date: 20120503
  Receipt Date: 20110406
  Transmission Date: 20120825
  Serious: No
  Sender: FDA-Public Use
  Company Number: US-TEVA-2011001676

PATIENT
  Age: 46 Year
  Sex: Female

DRUGS (1)
  1. NUVIGIL [Suspect]
     Dosage: 150 MILLIGRAM;
     Route: 048
     Dates: start: 20110331, end: 20110401

REACTIONS (3)
  - HYPOAESTHESIA [None]
  - URTICARIA [None]
  - INSOMNIA [None]
